FAERS Safety Report 15985145 (Version 1)
Quarter: 2019Q1

REPORT INFORMATION
  Report Type: Spontaneous
  Country: SE (occurrence: SE)
  Receive Date: 20190220
  Receipt Date: 20190220
  Transmission Date: 20190418
  Serious: Yes (Hospitalization, Disabling)
  Sender: FDA-Public Use
  Company Number: SE-009507513-1902SWE006672

PATIENT
  Age: 71 Year
  Sex: Female

DRUGS (1)
  1. EZETROL 10 MG TABLETTER [Suspect]
     Active Substance: EZETIMIBE
     Indication: LIPID METABOLISM DISORDER
     Dosage: 10 MG 1X1
     Route: 048
     Dates: start: 20160420, end: 20170620

REACTIONS (1)
  - Polyneuropathy [Not Recovered/Not Resolved]

NARRATIVE: CASE EVENT DATE: 20170620
